FAERS Safety Report 5339652-0 (Version None)
Quarter: 2007Q2

REPORT INFORMATION
  Report Type: 
  Country: None (occurrence: None)
  Receive Date: 20070404
  Receipt Date: 20060807
  Transmission Date: 20071010
  Serious: Yes (Other)
  Sender: FDA-Public Use
  Company Number: 2006096414

PATIENT
  Age: 52 Year
  Sex: Female

DRUGS (2)
  1. GEODON [Suspect]
     Indication: DEPRESSION
     Dosage: 120 MG (60 MG, 2 IN 1 D),
     Dates: start: 20051001
  2. GEODON [Suspect]
     Indication: PSYCHOTIC DISORDER
     Dosage: 120 MG (60 MG, 2 IN 1 D),
     Dates: start: 20051001

REACTIONS (1)
  - TARDIVE DYSKINESIA [None]
